FAERS Safety Report 23505994 (Version 1)
Quarter: 2024Q1

REPORT INFORMATION
  Report Type: Spontaneous
  Country: US (occurrence: None)
  Receive Date: 20240208
  Receipt Date: 20240208
  Transmission Date: 20240410
  Serious: Yes (Hospitalization)
  Sender: FDA-Public Use
  Company Number: None

PATIENT
  Sex: Male

DRUGS (1)
  1. REMICADE [Suspect]
     Active Substance: INFLIXIMAB
     Indication: Crohn^s disease
     Dosage: OTHER STRENGTH : 100 MG/VL;?OTHER QUANTITY : 10 MG/KG;?OTHER FREQUENCY : EVERY 6 WEEKS;?
     Route: 042
     Dates: start: 202009

REACTIONS (2)
  - Abdominal pain [None]
  - Pancreatitis [None]
